FAERS Safety Report 12382457 (Version 1)
Quarter: 2016Q2

REPORT INFORMATION
  Report Type: Report from Study
  Country: NZ (occurrence: NZ)
  Receive Date: 20160518
  Receipt Date: 20160518
  Transmission Date: 20160815
  Serious: Yes (Other)
  Sender: FDA-Public Use
  Company Number: NZ-ABBVIE-16K-118-1626231-00

PATIENT
  Sex: Female

DRUGS (2)
  1. HUMIRA [Suspect]
     Active Substance: ADALIMUMAB
     Indication: PSORIATIC ARTHROPATHY
  2. HUMIRA [Suspect]
     Active Substance: ADALIMUMAB
     Indication: PSORIASIS
     Route: 058

REACTIONS (9)
  - Physical assault [Unknown]
  - Suicidal ideation [Recovered/Resolved]
  - Stress [Unknown]
  - Decreased interest [Unknown]
  - Depressed mood [Unknown]
  - Feeling of despair [Unknown]
  - Depressed mood [Recovered/Resolved]
  - Nervousness [Unknown]
  - Anxiety [Unknown]
